FAERS Safety Report 14267767 (Version 1)
Quarter: 2017Q4

REPORT INFORMATION
  Report Type: Spontaneous
  Country: US (occurrence: US)
  Receive Date: 20171211
  Receipt Date: 20171211
  Transmission Date: 20180321
  Serious: Yes (Death)
  Sender: FDA-Public Use
  Company Number: None

PATIENT
  Age: 84 Year
  Sex: Male

DRUGS (1)
  1. COUMADIN [Suspect]
     Active Substance: WARFARIN SODIUM
     Indication: ATRIAL FIBRILLATION
     Route: 048

REACTIONS (5)
  - Haematoma [None]
  - International normalised ratio increased [None]
  - Cardio-respiratory arrest [None]
  - Dyspnoea [None]
  - Peritoneal haemorrhage [None]

NARRATIVE: CASE EVENT DATE: 20171019
